FAERS Safety Report 7785117-6 (Version None)
Quarter: 2011Q3

REPORT INFORMATION
  Report Type: 
  Country: None (occurrence: None)
  Receive Date: 20110929
  Receipt Date: 20110920
  Transmission Date: 20111222
  Serious: No
  Sender: FDA-Public Use
  Company Number: US-BIOGENIDEC-2011BI035846

PATIENT
  Age: 50 Year
  Sex: Female

DRUGS (2)
  1. AVONEX [Concomitant]
     Indication: MULTIPLE SCLEROSIS
     Route: 030
     Dates: start: 20060628
  2. TYSABRI [Suspect]
     Indication: MULTIPLE SCLEROSIS
     Route: 042
     Dates: start: 20110915

REACTIONS (15)
  - BACK PAIN [None]
  - PAIN IN EXTREMITY [None]
  - AGITATION [None]
  - MUSCULOSKELETAL PAIN [None]
  - GENERAL SYMPTOM [None]
  - FATIGUE [None]
  - PALPITATIONS [None]
  - PARAESTHESIA [None]
  - ASTHENIA [None]
  - MYALGIA [None]
  - INFLUENZA LIKE ILLNESS [None]
  - DECREASED IMMUNE RESPONSIVENESS [None]
  - ABDOMINAL PAIN UPPER [None]
  - POOR QUALITY SLEEP [None]
  - HYPOAESTHESIA [None]
